FAERS Safety Report 16306617 (Version 3)
Quarter: 2020Q1

REPORT INFORMATION
  Report Type: Report from Study
  Country: US (occurrence: US)
  Receive Date: 20190513
  Receipt Date: 20200318
  Transmission Date: 20200409
  Serious: Yes (Other)
  Sender: FDA-Public Use
  Company Number: PHEH2019US019286

PATIENT
  Age: 73 Year
  Sex: Female

DRUGS (1)
  1. GILENYA [Suspect]
     Active Substance: FINGOLIMOD HYDROCHLORIDE
     Indication: RELAPSING-REMITTING MULTIPLE SCLEROSIS
     Dosage: 0.5 MG, QD
     Route: 048
     Dates: start: 20110406

REACTIONS (7)
  - Inflammation [Unknown]
  - Hypertension [Unknown]
  - Dizziness [Unknown]
  - Neck pain [Unknown]
  - Cerebrovascular accident [Unknown]
  - JC polyomavirus test positive [Unknown]
  - Fall [Unknown]

NARRATIVE: CASE EVENT DATE: 2013
